FAERS Safety Report 7501395-2 (Version None)
Quarter: 2011Q2

REPORT INFORMATION
  Report Type: 
  Country: None (occurrence: None)
  Receive Date: 20110524
  Receipt Date: 20110512
  Transmission Date: 20111010
  Serious: Yes (Other)
  Sender: FDA-Public Use
  Company Number: US-BAYER-2011-013996

PATIENT
  Age: 36 Year
  Sex: Female
  Weight: 53.515 kg

DRUGS (4)
  1. LOESTRIN 24 FE [Concomitant]
  2. LEVOXYL [Concomitant]
     Indication: HYPOTHYROIDISM
     Dosage: UNK
     Route: 048
     Dates: start: 19980101
  3. YASMIN [Suspect]
     Indication: ACNE
     Dosage: UNK UNK, QD
     Route: 048
     Dates: start: 20070101, end: 20090901
  4. DROSPIRENONE AND ETHINYL ESTRADIOL [Suspect]
     Indication: ACNE
     Dosage: UNK UNK, QD
     Route: 048
     Dates: start: 20070101, end: 20090901

REACTIONS (8)
  - PAIN [None]
  - BILIARY COLIC [None]
  - GALLBLADDER DISORDER [None]
  - DEEP VEIN THROMBOSIS [None]
  - PULMONARY EMBOLISM [None]
  - INJURY [None]
  - MYOCARDIAL INFARCTION [None]
  - CEREBROVASCULAR ACCIDENT [None]
